FAERS Safety Report 5216305-0 (Version None)
Quarter: 2007Q1

REPORT INFORMATION
  Report Type: 
  Country: None (occurrence: None)
  Receive Date: 20070118
  Receipt Date: 20070105
  Transmission Date: 20070707
  Serious: Yes (Hospitalization)
  Sender: FDA-Public Use
  Company Number: 07-000053

PATIENT
  Age: 3 Year
  Sex: Female

DRUGS (1)
  1. PYRIDIUM(PHENAZOPYRIDINE HYDROCHLORIDE) TABLET, 100MG [Suspect]
     Dosage: ORAL
     Route: 048

REACTIONS (8)
  - ABDOMINAL PAIN [None]
  - ACCIDENTAL DRUG INTAKE BY CHILD [None]
  - ACCIDENTAL EXPOSURE [None]
  - CYANOSIS [None]
  - LETHARGY [None]
  - METHAEMOGLOBINAEMIA [None]
  - SLEEP DISORDER [None]
  - SOMNOLENCE [None]
